FAERS Safety Report 6709915-2 (Version None)
Quarter: 2010Q2

REPORT INFORMATION
  Report Type: 
  Country: None (occurrence: None)
  Receive Date: 20100504
  Receipt Date: 20100417
  Transmission Date: 20101027
  Serious: Yes (Hospitalization)
  Sender: FDA-Public Use
  Company Number: GB-TEVA-228493ISR

PATIENT
  Sex: Male

DRUGS (11)
  1. PREDNISOLONE [Suspect]
     Indication: PROSTATE CANCER
     Route: 048
     Dates: start: 20081027
  2. ABIRATERONE ACETATE OR PLACEBO [Suspect]
     Indication: PROSTATE CANCER
     Route: 048
     Dates: start: 20081027, end: 20090426
  3. OXYTETRACYCLINE [Concomitant]
     Route: 048
     Dates: start: 20090407, end: 20090409
  4. DEXAMETHASONE [Concomitant]
     Indication: SPINAL CORD COMPRESSION
     Route: 048
     Dates: start: 20090319
  5. LANSOPRAZOLE [Concomitant]
     Route: 048
     Dates: start: 20090219
  6. DORBANEX [Concomitant]
     Indication: CONSTIPATION
     Route: 048
     Dates: start: 20090319
  7. MORPHINE SULFATE [Concomitant]
     Indication: CANCER PAIN
     Dosage: AS NEEDED
     Route: 048
     Dates: start: 20090319, end: 20090409
  8. SIMVASTATIN [Concomitant]
  9. LEUPROLIDE ACETATE [Concomitant]
     Dates: start: 20081027
  10. MORPHINE SULFATE [Concomitant]
     Route: 048
     Dates: start: 20080101
  11. DICLOFENAC [Concomitant]
     Dates: start: 20090319

REACTIONS (1)
  - RESPIRATORY FAILURE [None]
